FAERS Safety Report 5582269-3 (Version None)
Quarter: 2008Q1

REPORT INFORMATION
  Report Type: 
  Country: None (occurrence: None)
  Receive Date: 20080104
  Receipt Date: 20071227
  Transmission Date: 20080703
  Serious: Yes (Other)
  Sender: FDA-Public Use
  Company Number: US-MERCK-0711USA03143

PATIENT
  Age: 75 Year
  Sex: Female
  Weight: 58 kg

DRUGS (11)
  1. FOSAMAX [Suspect]
     Indication: OSTEOPOROSIS
     Route: 048
     Dates: end: 20071113
  2. METHOTREXATE [Concomitant]
     Route: 048
  3. ADVAIR DISKUS 100/50 [Concomitant]
  4. VITAMINS (UNSPECIFIED) [Concomitant]
     Route: 065
  5. CALCIUM (UNSPECIFIED) AND VITAMIN D (UNSPECIFIED) [Concomitant]
     Route: 048
  6. FOLIC ACID [Concomitant]
     Route: 065
  7. METOCLOPRAMIDE [Concomitant]
     Route: 065
  8. ALBUTEROL [Concomitant]
     Route: 065
  9. BENADRYL [Concomitant]
     Route: 065
  10. TYLENOL [Concomitant]
     Route: 065
  11. PREDNISONE [Concomitant]
     Route: 065

REACTIONS (16)
  - CHRONIC OBSTRUCTIVE PULMONARY DISEASE [None]
  - COUGH [None]
  - EUSTACHIAN TUBE DYSFUNCTION [None]
  - IMPAIRED HEALING [None]
  - MUSCULOSKELETAL PAIN [None]
  - OROPHARYNGEAL PLAQUE [None]
  - OSTEONECROSIS [None]
  - OSTEOPOROSIS [None]
  - PNEUMONITIS [None]
  - SINUSITIS [None]
  - SYNOVIAL CYST [None]
  - TEMPOROMANDIBULAR JOINT SYNDROME [None]
  - URINARY TRACT INFECTION [None]
  - VULVOVAGINAL BURNING SENSATION [None]
  - VULVOVAGINAL PRURITUS [None]
  - WRIST FRACTURE [None]
